FAERS Safety Report 4607672-7 (Version None)
Quarter: 2005Q2

REPORT INFORMATION
  Report Type: 
  Country: None (occurrence: None)
  Receive Date: 20050228
  Receipt Date: 20041227
  Transmission Date: 20051028
  Serious: No
  Sender: FDA-Public Use
  Company Number: FABR-10851

PATIENT
  Age: 46 Year
  Sex: Female

DRUGS (1)
  1. FABRAZYME [Suspect]
     Indication: FABRY'S DISEASE
     Dosage: 95 MG Q2WKS IV
     Route: 042
     Dates: start: 20041020

REACTIONS (3)
  - BURNING SENSATION [None]
  - FEELING HOT [None]
  - LIMB DISCOMFORT [None]
